FAERS Safety Report 21451662 (Version 1)
Quarter: 2022Q4

REPORT INFORMATION
  Report Type: Spontaneous
  Country: US (occurrence: None)
  Receive Date: 20221012
  Receipt Date: 20221012
  Transmission Date: 20230113
  Serious: Yes (Disabling)
  Sender: FDA-Public Use
  Company Number: None

PATIENT
  Age: 37 Year
  Sex: Female
  Weight: 63 kg

DRUGS (13)
  1. BOTOX [Suspect]
     Active Substance: ONABOTULINUMTOXINA
     Indication: Skin wrinkling
     Dosage: OTHER QUANTITY : 45 UNIT;?
     Route: 030
     Dates: start: 20221010, end: 20221010
  2. METFORMIN [Concomitant]
     Active Substance: METFORMIN HYDROCHLORIDE
  3. ZOLOFT [Concomitant]
     Active Substance: SERTRALINE HYDROCHLORIDE
  4. TRAZODONE [Concomitant]
     Active Substance: TRAZODONE HYDROCHLORIDE
  5. LYRICA [Concomitant]
     Active Substance: PREGABALIN
  6. HYDROCODONE [Concomitant]
     Active Substance: HYDROCODONE
  7. IMITREX [Concomitant]
     Active Substance: SUMATRIPTAN SUCCINATE
  8. TYLENOL [Concomitant]
     Active Substance: ACETAMINOPHEN
  9. BENADRYL [Concomitant]
     Active Substance: DIPHENHYDRAMINE HYDROCHLORIDE
  10. VITAMIN B [Concomitant]
     Active Substance: VITAMIN B
  11. VITAMIN C [Concomitant]
     Active Substance: ASCORBIC ACID
  12. VITAMIN D [Concomitant]
     Active Substance: VITAMIN D NOS
  13. ALLEGRA [Concomitant]
     Active Substance: FEXOFENADINE HYDROCHLORIDE

REACTIONS (13)
  - Chills [None]
  - Hyperhidrosis [None]
  - Pyrexia [None]
  - Myalgia [None]
  - Oropharyngeal pain [None]
  - Pharyngeal erythema [None]
  - Lymphadenopathy [None]
  - Odynophagia [None]
  - Headache [None]
  - Migraine [None]
  - Arthralgia [None]
  - Gait disturbance [None]
  - Drug ineffective [None]

NARRATIVE: CASE EVENT DATE: 20221011
